FAERS Safety Report 10557346 (Version 1)
Quarter: 2014Q4

REPORT INFORMATION
  Report Type: Spontaneous
  Country: US (occurrence: US)
  Receive Date: 20141031
  Receipt Date: 20141031
  Transmission Date: 20150529
  Serious: Yes (Hospitalization)
  Sender: FDA-Public Use
  Company Number: US-JNJFOC-20141015165

PATIENT
  Age: 64 Year
  Sex: Male

DRUGS (13)
  1. PANTOPRAZOLE SODIUM [Suspect]
     Active Substance: PANTOPRAZOLE SODIUM
     Indication: DUODENITIS
     Route: 048
     Dates: start: 20131129, end: 20131129
  2. LEVAQUIN [Suspect]
     Active Substance: LEVOFLOXACIN
     Indication: BRONCHITIS
     Route: 048
     Dates: start: 20131126, end: 20131128
  3. AMITRIPTYLINE [Concomitant]
     Active Substance: AMITRIPTYLINE
     Route: 065
  4. PIPERACILLIN SODIUM [Suspect]
     Active Substance: PIPERACILLIN SODIUM
     Indication: DUODENITIS
     Route: 042
     Dates: start: 20131129, end: 20131129
  5. VANCOMYCIN [Suspect]
     Active Substance: VANCOMYCIN
     Indication: DUODENITIS
     Route: 048
     Dates: start: 20131129, end: 20131129
  6. LEVAQUIN [Suspect]
     Active Substance: LEVOFLOXACIN
     Indication: BRONCHITIS
     Route: 042
     Dates: start: 20131129, end: 20131210
  7. CARDURA [Concomitant]
     Active Substance: DOXAZOSIN MESYLATE
     Route: 065
     Dates: start: 200907
  8. LOTREL [Concomitant]
     Active Substance: AMLODIPINE BESYLATE\BENAZEPRIL HYDROCHLORIDE
     Route: 065
  9. GS-9973 [Suspect]
     Active Substance: INVESTIGATIONAL PRODUCT
     Indication: HAEMATOLOGICAL MALIGNANCY
     Route: 048
     Dates: start: 20131106, end: 20131126
  10. GS-9973 [Suspect]
     Active Substance: INVESTIGATIONAL PRODUCT
     Indication: HAEMATOLOGICAL MALIGNANCY
     Route: 048
     Dates: start: 20140116, end: 20140116
  11. DOXAZOSIN [Concomitant]
     Active Substance: DOXAZOSIN\DOXAZOSIN MESYLATE
     Route: 065
  12. ZOFRAN [Concomitant]
     Active Substance: ONDANSETRON HYDROCHLORIDE
     Route: 065
     Dates: start: 200907
  13. ZANTAC [Concomitant]
     Active Substance: RANITIDINE HYDROCHLORIDE
     Route: 065
     Dates: start: 20131120, end: 20131121

REACTIONS (4)
  - Hepatitis [Recovered/Resolved with Sequelae]
  - Duodenitis [Recovered/Resolved]
  - Pleural effusion [Unknown]
  - Pyrexia [Unknown]

NARRATIVE: CASE EVENT DATE: 20131127
